FAERS Safety Report 9269563 (Version 4)
Quarter: 2013Q3

REPORT INFORMATION
  Report Type: Report from Study
  Country: GB (occurrence: GB)
  Receive Date: 20130503
  Receipt Date: 20130813
  Transmission Date: 20140515
  Serious: Yes (Hospitalization, Disabling, Other)
  Sender: FDA-Public Use
  Company Number: GB-ROCHE-1219860

PATIENT
  Age: 90 Year
  Sex: Female

DRUGS (8)
  1. RANIBIZUMAB [Suspect]
     Indication: AGE-RELATED MACULAR DEGENERATION
     Route: 050
     Dates: start: 20120127, end: 20120127
  2. RANIBIZUMAB [Suspect]
     Route: 050
     Dates: start: 20121102, end: 20121102
  3. RANIBIZUMAB [Suspect]
     Route: 050
     Dates: start: 20130201
  4. PARACETAMOL [Concomitant]
  5. SALBUTAMOL INHALER [Concomitant]
  6. LATANOPROST [Concomitant]
     Route: 065
     Dates: start: 20090317
  7. BECLOMETASONE [Concomitant]
  8. CODEINE PHOSPHATE [Concomitant]

REACTIONS (10)
  - Femoral neck fracture [Unknown]
  - Pneumonia aspiration [Recovered/Resolved]
  - Sepsis [Recovered/Resolved]
  - Pneumonia [Unknown]
  - Pneumothorax [Recovered/Resolved]
  - Gastrointestinal stoma complication [Recovered/Resolved]
  - Renal failure acute [Unknown]
  - Confusional state [Recovered/Resolved]
  - Urinary tract infection [Recovered/Resolved]
  - Hypocalcaemia [Recovered/Resolved]
